FAERS Safety Report 16697198 (Version 2)
Quarter: 2019Q3

REPORT INFORMATION
  Report Type: Spontaneous
  Country: US (occurrence: US)
  Receive Date: 20190813
  Receipt Date: 20190815
  Transmission Date: 20191004
  Serious: Yes (Other)
  Sender: FDA-Public Use
  Company Number: US-PFIZER INC-2019341024

PATIENT
  Age: 17 Year
  Sex: Male

DRUGS (1)
  1. VANCOMYCIN HCL [Suspect]
     Active Substance: VANCOMYCIN HYDROCHLORIDE
     Dosage: UNK (UNKNOWN DOSE [AMOUNT])
     Route: 042

REACTIONS (2)
  - Acute kidney injury [Unknown]
  - Renal failure [Unknown]
